FAERS Safety Report 22639999 (Version 1)
Quarter: 2023Q2

REPORT INFORMATION
  Report Type: Spontaneous
  Country: US (occurrence: None)
  Receive Date: 20230626
  Receipt Date: 20230626
  Transmission Date: 20230721
  Serious: Yes (Other)
  Sender: FDA-Public Use
  Company Number: US-MICRO LABS LIMITED-ML2023-03411

PATIENT
  Sex: Female

DRUGS (5)
  1. RANOLAZINE [Suspect]
     Active Substance: RANOLAZINE
     Indication: Torsade de pointes
     Dosage: COMPOUNDED RANOLAZINE WAS USED
  2. MEXILETINE [Concomitant]
     Active Substance: MEXILETINE
     Indication: Torsade de pointes
  3. MEXILETINE [Concomitant]
     Active Substance: MEXILETINE
  4. PROPRANOLOL [Concomitant]
     Active Substance: PROPRANOLOL HYDROCHLORIDE
     Indication: Torsade de pointes
  5. PROPRANOLOL [Concomitant]
     Active Substance: PROPRANOLOL HYDROCHLORIDE

REACTIONS (4)
  - Torsade de pointes [Recovered/Resolved]
  - Condition aggravated [Recovered/Resolved]
  - Drug level decreased [Unknown]
  - Inappropriate schedule of product administration [Unknown]
